FAERS Safety Report 11182994 (Version 2)
Quarter: 2015Q4

REPORT INFORMATION
  Report Type: Report from Study
  Country: KR (occurrence: KR)
  Receive Date: 20150611
  Receipt Date: 20151213
  Transmission Date: 20160304
  Serious: No
  Sender: FDA-Public Use
  Company Number: PHHY2015KR028496

PATIENT
  Sex: Male

DRUGS (1)
  1. TASIGNA [Suspect]
     Active Substance: NILOTINIB
     Indication: CHRONIC MYELOID LEUKAEMIA
     Dosage: 300 MG, BID
     Route: 048
     Dates: start: 2012

REACTIONS (3)
  - Myalgia [Not Recovered/Not Resolved]
  - Urticaria [Not Recovered/Not Resolved]
  - Sensitivity of teeth [Recovered/Resolved]

NARRATIVE: CASE EVENT DATE: 2015
